FAERS Safety Report 14879590 (Version 2)
Quarter: 2018Q2

REPORT INFORMATION
  Report Type: Spontaneous
  Country: GB (occurrence: GB)
  Receive Date: 20180511
  Receipt Date: 20180611
  Transmission Date: 20180711
  Serious: Yes (Life-Threatening, Other)
  Sender: FDA-Public Use
  Company Number: GB-AUROBINDO-AUR-APL-2018-025091

PATIENT
  Age: 19 Year
  Sex: Female
  Weight: 46 kg

DRUGS (5)
  1. ZOPICLONE [Suspect]
     Active Substance: ZOPICLONE
     Indication: INSOMNIA
     Dosage: 7.5 MILLIGRAM
     Route: 048
     Dates: start: 20171128, end: 20171128
  2. SERTRALINE [Concomitant]
     Active Substance: SERTRALINE HYDROCHLORIDE
     Indication: PRODUCT USED FOR UNKNOWN INDICATION
     Dosage: UNK
     Route: 065
  3. LORAZEPAM. [Concomitant]
     Active Substance: LORAZEPAM
     Indication: PRODUCT USED FOR UNKNOWN INDICATION
     Dosage: UNK
     Route: 065
  4. DIAZEPAM. [Concomitant]
     Active Substance: DIAZEPAM
     Indication: PRODUCT USED FOR UNKNOWN INDICATION
     Dosage: UNK
     Route: 065
  5. CITALOPRAM [Suspect]
     Active Substance: CITALOPRAM HYDROBROMIDE
     Indication: DEPRESSION
     Dosage: 20 MILLIGRAM
     Route: 048
     Dates: start: 20171121, end: 20171122

REACTIONS (19)
  - Transient psychosis [Unknown]
  - Anxiety [Unknown]
  - Abnormal loss of weight [Unknown]
  - Amenorrhoea [Unknown]
  - Bruxism [Not Recovered/Not Resolved]
  - Decreased appetite [Not Recovered/Not Resolved]
  - Vaginal haemorrhage [Unknown]
  - Apathy [Recovered/Resolved with Sequelae]
  - Vomiting [Unknown]
  - Myocardial infarction [Unknown]
  - Serotonin syndrome [Recovered/Resolved with Sequelae]
  - Blood pressure increased [Unknown]
  - Depression [Recovered/Resolved with Sequelae]
  - Insomnia [Recovered/Resolved with Sequelae]
  - Drug interaction [Unknown]
  - Paraesthesia [Unknown]
  - Sinus tachycardia [Recovered/Resolved with Sequelae]
  - Wrong technique in product usage process [Unknown]
  - Feeling abnormal [Unknown]

NARRATIVE: CASE EVENT DATE: 20171128
